FAERS Safety Report 8257725-X (Version None)
Quarter: 2012Q2

REPORT INFORMATION
  Report Type: 
  Country: None (occurrence: None)
  Receive Date: 20120404
  Receipt Date: 20120321
  Transmission Date: 20120825
  Serious: Yes (Other)
  Sender: FDA-Public Use
  Company Number: BR-AMGEN-BRASP2012019182

PATIENT
  Age: 59 Year
  Sex: Female
  Weight: 50 kg

DRUGS (6)
  1. ENBREL [Suspect]
     Indication: RHEUMATOID ARTHRITIS
     Dosage: 50 MG, 1X/WEEK
     Route: 058
     Dates: start: 20111101, end: 20111201
  2. PIROXICAM [Concomitant]
     Dosage: UNK
  3. PREDNISOLONE [Concomitant]
     Dosage: UNK
  4. ARAVA [Concomitant]
     Dosage: 20 MG, UNK
  5. CALCIUM CARBONATE [Concomitant]
     Dosage: 500 MG, UNK
  6. CLONAZEPAM [Concomitant]
     Dosage: STRENGTH 2MG (HALF A TABLET UNSPECIFIED FREQUENCY)

REACTIONS (2)
  - TENDON INJURY [None]
  - INFECTION [None]
